FAERS Safety Report 9767533 (Version 1)
Quarter: 2013Q4

REPORT INFORMATION
  Report Type: Spontaneous
  Country: US (occurrence: US)
  Receive Date: 20131217
  Receipt Date: 20131217
  Transmission Date: 20140711
  Serious: No
  Sender: FDA-Public Use
  Company Number: US-GILEAD-2009-0023739

PATIENT
  Age: 36 Year
  Sex: Female
  Weight: 52 kg

DRUGS (3)
  1. VIREAD [Suspect]
     Indication: PRODUCT USED FOR UNKNOWN INDICATION
     Route: 048
     Dates: start: 20090805
  2. VITAMIN C [Concomitant]
     Route: 048
  3. MULTIVITAMIN [Concomitant]
     Route: 048

REACTIONS (2)
  - Gastrooesophageal reflux disease [Recovered/Resolved]
  - Arthralgia [Recovering/Resolving]
